FAERS Safety Report 5108642-5 (Version None)
Quarter: 2006Q3

REPORT INFORMATION
  Report Type: 
  Country: None (occurrence: None)
  Receive Date: 20060915
  Receipt Date: 20060830
  Transmission Date: 20061208
  Serious: Yes (Hospitalization)
  Sender: FDA-Public Use
  Company Number: 229620

PATIENT
  Age: 41 Year
  Sex: Female
  Weight: 100 kg

DRUGS (5)
  1. AVASTIN [Suspect]
     Indication: COLON CANCER
     Dosage: 510 MG, Q2W, INTRAVENOUS
     Route: 042
     Dates: start: 20051010, end: 20060306
  2. OXALIPLATIN [Suspect]
     Indication: COLON CANCER
     Dosage: 163 MG, Q2W, INTRAVENOUS
     Route: 042
     Dates: start: 20051010
  3. LEUCOVORIN (LEUCOVORN CALCIUM) [Suspect]
     Indication: COLON CANCER
     Dosage: Q2W, INTRAVENOUS
     Route: 042
     Dates: start: 20051010, end: 20060306
  4. FLUOROURACIL [Suspect]
     Indication: COLON CANCER
     Dosage: SEE IMAGE
     Route: 042
     Dates: start: 20051010, end: 20060306
  5. FLUOROURACIL [Suspect]
     Indication: COLON CANCER
     Dosage: SEE IMAGE
     Route: 042
     Dates: start: 20051010, end: 20060306

REACTIONS (2)
  - CENTRAL LINE INFECTION [None]
  - INJECTION SITE EXTRAVASATION [None]
